FAERS Safety Report 5262108-0 (Version None)
Quarter: 2007Q1

REPORT INFORMATION
  Report Type: 
  Country: None (occurrence: None)
  Receive Date: 20070311
  Receipt Date: 20070228
  Transmission Date: 20070707
  Serious: Yes (Other)
  Sender: FDA-Public Use
  Company Number: 2006UW04346

PATIENT
  Age: 43 Year
  Sex: Male
  Weight: 130.9 kg

DRUGS (6)
  1. SEROQUEL [Suspect]
     Indication: ANXIETY
     Dosage: 500-600 MG
     Route: 048
     Dates: start: 19970101
  2. SEROQUEL [Suspect]
     Indication: PARANOIA
     Dosage: 500-600 MG
     Route: 048
     Dates: start: 19970101
  3. SEROQUEL [Suspect]
     Indication: DELUSION
     Dosage: 500-600 MG
     Route: 048
     Dates: start: 19970101
  4. RISPERDAL [Concomitant]
  5. ZYPREXA [Concomitant]
     Dates: start: 19960101, end: 19970101
  6. WELLBUTRIN [Concomitant]

REACTIONS (4)
  - DIABETES MELLITUS [None]
  - DIZZINESS [None]
  - FRACTURE [None]
  - TARDIVE DYSKINESIA [None]
